FAERS Safety Report 15494796 (Version 3)
Quarter: 2018Q4

REPORT INFORMATION
  Report Type: Report from Study
  Country: US (occurrence: US)
  Receive Date: 20181012
  Receipt Date: 20181106
  Transmission Date: 20190205
  Serious: Yes (Death, Life-Threatening, Other)
  Sender: FDA-Public Use
  Company Number: US-GILEAD-2018-0367336

PATIENT
  Age: 34 Year
  Sex: Female
  Weight: 66.21 kg

DRUGS (4)
  1. VELETRI [Concomitant]
     Active Substance: EPOPROSTENOL
  2. REMODULIN [Concomitant]
     Active Substance: TREPROSTINIL
     Indication: PULMONARY HYPERTENSION
     Dosage: UNK
  3. AMBRISENTAN [Suspect]
     Active Substance: AMBRISENTAN
     Indication: PULMONARY HYPERTENSION
     Dosage: 5 MG, QD
     Route: 065
     Dates: start: 20180426
  4. REMODULIN [Concomitant]
     Active Substance: TREPROSTINIL
     Dosage: 33.3 NG, Q1MINUTE
     Dates: start: 20180310, end: 20181027

REACTIONS (7)
  - Abdominal pain [Unknown]
  - Lung disorder [Unknown]
  - Cardiac disorder [Unknown]
  - Oedema peripheral [Unknown]
  - Liver disorder [Unknown]
  - Disease progression [Fatal]
  - Ascites [Unknown]

NARRATIVE: CASE EVENT DATE: 20181023
